FAERS Safety Report 5628735-3 (Version None)
Quarter: 2008Q1

REPORT INFORMATION
  Report Type: 
  Country: None (occurrence: None)
  Receive Date: 20080215
  Receipt Date: 20080206
  Transmission Date: 20080703
  Serious: Yes (Other)
  Sender: FDA-Public Use
  Company Number: US-PFIZER INC-2008012510

PATIENT
  Sex: Male
  Weight: 89.545 kg

DRUGS (4)
  1. CHANTIX [Suspect]
     Indication: SMOKING CESSATION THERAPY
     Dates: start: 20071201, end: 20080203
  2. ENALAPRIL MALEATE [Concomitant]
     Indication: HYPERTENSION
  3. SIMVASTATIN [Concomitant]
     Indication: ARTERIAL OCCLUSIVE DISEASE
  4. ZOCOR [Concomitant]
     Indication: ARTERIAL OCCLUSIVE DISEASE

REACTIONS (3)
  - BEDRIDDEN [None]
  - FATIGUE [None]
  - FEELING ABNORMAL [None]
